FAERS Safety Report 24657539 (Version 1)
Quarter: 2024Q4

REPORT INFORMATION
  Report Type: Spontaneous
  Country: CA (occurrence: CA)
  Receive Date: 20241125
  Receipt Date: 20241125
  Transmission Date: 20250114
  Serious: Yes (Other)
  Sender: Haleon PLC
  Company Number: CA-HALEON-2210138

PATIENT
  Age: 32 Year
  Sex: Female

DRUGS (18)
  1. NICOTINE [Suspect]
     Active Substance: NICOTINE
     Indication: Drug withdrawal syndrome
     Dosage: TRANSDERMAL
  2. BACLOFEN [Suspect]
     Active Substance: BACLOFEN
     Indication: Drug withdrawal syndrome
     Dosage: 1 EVERY 1 DAYS
     Route: 065
  3. BACLOFEN [Suspect]
     Active Substance: BACLOFEN
     Dosage: TIME INTERVAL: 0.33333333 DAYS: 3 EVERY 1 DAYS
     Route: 065
  4. BACLOFEN [Suspect]
     Active Substance: BACLOFEN
     Dosage: 4 EVERY 1 DAYS
     Route: 065
  5. BACLOFEN [Suspect]
     Active Substance: BACLOFEN
     Dosage: 4 EVERY 1 DAYS
     Route: 065
  6. BACLOFEN [Suspect]
     Active Substance: BACLOFEN
     Dosage: 2 EVERY 1 DAYS
     Route: 065
  7. DIAZEPAM [Suspect]
     Active Substance: DIAZEPAM
     Indication: Drug withdrawal syndrome
     Dosage: 1 EVERY 6 HOURS
     Route: 065
  8. DIAZEPAM [Suspect]
     Active Substance: DIAZEPAM
     Dosage: 1 EVERY 6 HOURS
     Route: 065
  9. DIAZEPAM [Suspect]
     Active Substance: DIAZEPAM
     Dosage: 2 EVERY 1 DAYS
     Route: 065
  10. DIAZEPAM [Suspect]
     Active Substance: DIAZEPAM
     Dosage: 1 EVERY 48 HOURS
     Route: 065
  11. DIAZEPAM [Suspect]
     Active Substance: DIAZEPAM
     Dosage: 1 EVERY 6 HOURS
     Route: 065
  12. DIAZEPAM [Suspect]
     Active Substance: DIAZEPAM
     Dosage: 1 EVERY 6 HOURS
     Route: 065
  13. DIAZEPAM [Suspect]
     Active Substance: DIAZEPAM
     Dosage: 1 EVERY 6 HOURS
     Route: 065
  14. DIAZEPAM [Suspect]
     Active Substance: DIAZEPAM
     Route: 065
  15. DIAZEPAM [Suspect]
     Active Substance: DIAZEPAM
     Dosage: 1 EVERY 4 HOURS
     Route: 065
  16. OXYBATE [Suspect]
     Active Substance: OXYBATE
     Indication: Anxiolytic therapy
     Route: 065
  17. METHAMPHETAMINE [Suspect]
     Active Substance: METHAMPHETAMINE
     Indication: Anxiolytic therapy
  18. SERTRALINE [Suspect]
     Active Substance: SERTRALINE HYDROCHLORIDE
     Indication: Drug withdrawal syndrome
     Dosage: 1 EVERY 1 DAYS
     Route: 065

REACTIONS (3)
  - Maternal exposure during pregnancy [Unknown]
  - Product use in unapproved indication [Unknown]
  - Premature delivery [Unknown]
